FAERS Safety Report 7209380-5 (Version None)
Quarter: 2011Q1

REPORT INFORMATION
  Report Type: 
  Country: None (occurrence: None)
  Receive Date: 20110104
  Receipt Date: 20101227
  Transmission Date: 20110831
  Serious: Yes (Hospitalization, Other)
  Sender: FDA-Public Use
  Company Number: US-TEVA-261448USA

PATIENT
  Age: 55 Year
  Sex: Male

DRUGS (3)
  1. FENTANYL [Interacting]
     Indication: PROCEDURAL PAIN
     Dosage: 25 ?G/HOUR
     Route: 042
  2. DILTIAZEM HCL [Suspect]
     Dosage: 15 MG/HOUR
  3. PROPOFOL [Interacting]
     Dosage: 20 MG/HOUR

REACTIONS (2)
  - DRUG INTERACTION [None]
  - NEUROTOXICITY [None]
